FAERS Safety Report 8401434-0 (Version None)
Quarter: 2012Q2

REPORT INFORMATION
  Report Type: 
  Country: None (occurrence: None)
  Receive Date: 20120601
  Receipt Date: 20120530
  Transmission Date: 20120825
  Serious: Yes (Hospitalization)
  Sender: FDA-Public Use
  Company Number: US-PFIZER INC-2012130643

PATIENT
  Sex: Female
  Weight: 62.585 kg

DRUGS (2)
  1. XALKORI [Suspect]
     Indication: LUNG NEOPLASM MALIGNANT
     Dosage: 250 MG, 2X/DAY
     Route: 048
     Dates: start: 20120301, end: 20120501
  2. DETROL LA [Concomitant]
     Indication: BLADDER DISORDER
     Dosage: 4 MG, DAILY

REACTIONS (1)
  - BLOOD CREATININE INCREASED [None]
